FAERS Safety Report 5015790-7 (Version None)
Quarter: 2006Q2

REPORT INFORMATION
  Report Type: 
  Country: None (occurrence: None)
  Receive Date: 20060525
  Receipt Date: 20060511
  Transmission Date: 20061013
  Serious: Yes (Hospitalization)
  Sender: FDA-Public Use
  Company Number: VNL_0149_2006

PATIENT
  Age: 67 Year
  Sex: Male

DRUGS (1)
  1. APO-GO [Suspect]
     Indication: PARKINSONISM
     Dosage: DF INFUSION SC
     Route: 058

REACTIONS (2)
  - ABDOMINAL WALL ABSCESS [None]
  - INFUSION SITE MASS [None]
